FAERS Safety Report 7103706-9 (Version None)
Quarter: 2010Q4

REPORT INFORMATION
  Report Type: 
  Country: None (occurrence: None)
  Receive Date: 20101115
  Receipt Date: 20080623
  Transmission Date: 20110411
  Serious: No
  Sender: FDA-Public Use
  Company Number: US-KINGPHARMUSA00001-K200800733

PATIENT
  Sex: Female
  Weight: 107.48 kg

DRUGS (2)
  1. ALTACE [Suspect]
     Indication: HYPERTENSION
     Dosage: 5 MG, UNK
     Route: 048
     Dates: start: 20080401
  2. ALTACE [Suspect]
     Indication: MYOCARDIAL INFARCTION

REACTIONS (4)
  - COUGH [None]
  - FLUID RETENTION [None]
  - JOINT SWELLING [None]
  - THROAT IRRITATION [None]
